FAERS Safety Report 19709798 (Version 2)
Quarter: 2021Q3

REPORT INFORMATION
  Report Type: Spontaneous
  Country: KR (occurrence: KR)
  Receive Date: 20210816
  Receipt Date: 20210927
  Transmission Date: 20211014
  Serious: Yes (Other)
  Sender: FDA-Public Use
  Company Number: KR-GILEAD-2021-0543846

PATIENT
  Sex: Male
  Weight: 70 kg

DRUGS (7)
  1. MUTERAN [Concomitant]
     Active Substance: ACETYLCYSTEINE
  2. TYLENOL [Concomitant]
     Active Substance: ACETAMINOPHEN
  3. LEGALON [Concomitant]
     Active Substance: DIETARY SUPPLEMENT\HERBALS\MILK THISTLE
  4. PREDISOLE [Concomitant]
     Dosage: UNK
     Dates: start: 20210805
  5. LAMINA?G [Concomitant]
  6. VEKLURY [Suspect]
     Active Substance: REMDESIVIR
     Indication: PRODUCT USED FOR UNKNOWN INDICATION
     Dosage: 100 MG, QD
     Route: 042
     Dates: start: 20210805, end: 20210809
  7. URSA [Concomitant]
     Active Substance: URSODIOL

REACTIONS (1)
  - Drug-induced liver injury [Unknown]

NARRATIVE: CASE EVENT DATE: 20210805
